FAERS Safety Report 5987029-7 (Version None)
Quarter: 2008Q4

REPORT INFORMATION
  Report Type: 
  Country: None (occurrence: None)
  Receive Date: 20081209
  Receipt Date: 20081204
  Transmission Date: 20090506
  Serious: Yes (Other)
  Sender: FDA-Public Use
  Company Number: B0548981A

PATIENT
  Age: 42 Year
  Sex: Female

DRUGS (1)
  1. ESKAZOLE [Suspect]
     Indication: TOXOCARIASIS
     Dosage: 200MG THREE TIMES PER DAY
     Route: 048
     Dates: start: 20080906, end: 20080919

REACTIONS (3)
  - ALANINE AMINOTRANSFERASE INCREASED [None]
  - ASPARTATE AMINOTRANSFERASE INCREASED [None]
  - LIVER DISORDER [None]
